FAERS Safety Report 4579981-1 (Version None)
Quarter: 2005Q1

REPORT INFORMATION
  Report Type: 
  Country: None (occurrence: None)
  Receive Date: 20050214
  Receipt Date: 20041130
  Transmission Date: 20050727
  Serious: Yes (Death, Hospitalization)
  Sender: FDA-Public Use
  Company Number: DE-ROCHE-387830

PATIENT
  Age: 62 Year
  Sex: Male

DRUGS (3)
  1. CAPECITABINE [Suspect]
     Indication: GASTRIC CANCER
     Dosage: GIVEN FROM DAYS ONE TO DAY FOURTEEN OF A THREE WEEK CYCLE.
     Route: 048
     Dates: start: 20041026
  2. CPT 11 [Suspect]
     Indication: GASTRIC CANCER
     Dosage: GIVEN ON DAY ONE OF THE CYCLE.
     Route: 042
     Dates: start: 20041026
  3. IMODIUM [Suspect]
     Indication: DIARRHOEA
     Route: 048

REACTIONS (6)
  - COAGULOPATHY [None]
  - HEPATIC FAILURE [None]
  - ILEUS [None]
  - MULTI-ORGAN FAILURE [None]
  - PNEUMONIA [None]
  - RENAL FAILURE [None]
